FAERS Safety Report 4735215-6 (Version None)
Quarter: 2005Q3

REPORT INFORMATION
  Report Type: 
  Country: None (occurrence: None)
  Receive Date: 20050805
  Receipt Date: 20050623
  Transmission Date: 20060218
  Serious: Yes (Other)
  Sender: FDA-Public Use
  Company Number: JP-ABBOTT-05P-087-0303911-00

PATIENT
  Age: 12 Year
  Sex: Male
  Weight: 28 kg

DRUGS (7)
  1. SEVOFLURANE [Suspect]
     Indication: MAINTENANCE OF ANAESTHESIA
     Route: 055
  2. PROPOFOL [Concomitant]
     Indication: DRUG USE FOR UNKNOWN INDICATION
     Route: 065
  3. VECURONIUM [Concomitant]
     Indication: DRUG USE FOR UNKNOWN INDICATION
     Route: 065
  4. AMINOPHYLLINE [Concomitant]
     Indication: DRUG USE FOR UNKNOWN INDICATION
     Dosage: NOT REPORTED
     Route: 055
  5. UNSPECIFIED CONTINUOUS DRIP [Concomitant]
     Indication: DRUG USE FOR UNKNOWN INDICATION
     Dosage: NOT REPORTED
  6. NITROGEN SUBOXIDE [Concomitant]
     Indication: ANAESTHESIA
     Dosage: 2 LITERS PER MINUTE
  7. OXYGEN [Concomitant]
     Indication: ANAESTHESIA
     Dosage: 4 LITERS PER MINUTE

REACTIONS (4)
  - HYPOVENTILATION [None]
  - OXYGEN SATURATION DECREASED [None]
  - STRIDOR [None]
  - VASODILATATION [None]
